FAERS Safety Report 7449838-7 (Version None)
Quarter: 2011Q2

REPORT INFORMATION
  Report Type: 
  Country: None (occurrence: None)
  Receive Date: 20110502
  Receipt Date: 20101207
  Transmission Date: 20111010
  Serious: Yes (Hospitalization)
  Sender: FDA-Public Use
  Company Number: US-BAYER-201037601NA

PATIENT
  Sex: Female

DRUGS (5)
  1. YASMIN [Suspect]
     Indication: ACNE
     Dosage: UNK
     Dates: start: 20040101, end: 20100101
  2. OCELLA [Suspect]
     Indication: ACNE
     Dosage: UNK
     Dates: start: 20040101, end: 20100101
  3. MOTRIN [Concomitant]
  4. NAPROXEN [Concomitant]
  5. YAZ [Suspect]
     Indication: ACNE
     Dosage: UNK
     Dates: start: 20040101, end: 20100101

REACTIONS (4)
  - NEPHROLITHIASIS [None]
  - GALLBLADDER DISORDER [None]
  - HEPATIC STEATOSIS [None]
  - PAIN [None]
